FAERS Safety Report 6942885-0 (Version None)
Quarter: 2010Q3

REPORT INFORMATION
  Report Type: 
  Country: None (occurrence: None)
  Receive Date: 20100826
  Receipt Date: 20100817
  Transmission Date: 20110219
  Serious: Yes (Other)
  Sender: FDA-Public Use
  Company Number: CA-JNJFOC-20100300866

PATIENT
  Sex: Female
  Weight: 74 kg

DRUGS (6)
  1. REMICADE [Suspect]
     Indication: CROHN'S DISEASE
     Dosage: 100MG/VIAL
     Route: 042
  2. IMURAN [Concomitant]
  3. LOMOTIL [Concomitant]
  4. VENTOLIN [Concomitant]
  5. PULMICORT [Concomitant]
  6. ZOLOFT [Concomitant]

REACTIONS (3)
  - ANAEMIA [None]
  - HYPERTENSION [None]
  - PROTEINURIA [None]
